FAERS Safety Report 12708931 (Version 1)
Quarter: 2016Q3

REPORT INFORMATION
  Report Type: Spontaneous
  Country: US (occurrence: US)
  Receive Date: 20160901
  Receipt Date: 20160901
  Transmission Date: 20161109
  Serious: No
  Sender: FDA-Public Use
  Company Number: US-JAZZ-2016-US-008418

PATIENT
  Sex: Female

DRUGS (18)
  1. XYREM [Suspect]
     Active Substance: SODIUM OXYBATE
     Indication: NARCOLEPSY
     Dosage: 3 G, BID
     Route: 048
     Dates: start: 201507, end: 201512
  2. TRIAMCINOLONE [Concomitant]
     Active Substance: TRIAMCINOLONE
  3. ALLEGRA-D [Concomitant]
     Active Substance: FEXOFENADINE\PSEUDOEPHEDRINE
  4. CLARITIN [Concomitant]
     Active Substance: LORATADINE
  5. VESTURA [Concomitant]
     Active Substance: DROSPIRENONE\ETHINYL ESTRADIOL
  6. MULTIVITAMINS [Concomitant]
     Active Substance: VITAMINS
  7. NUVIGIL [Concomitant]
     Active Substance: ARMODAFINIL
  8. XYREM [Suspect]
     Active Substance: SODIUM OXYBATE
     Indication: CATAPLEXY
     Dosage: 3.75 G, BID
     Route: 048
     Dates: start: 201601, end: 2016
  9. ZYRTEC [Concomitant]
     Active Substance: CETIRIZINE HYDROCHLORIDE
  10. ADDERALL [Concomitant]
     Active Substance: AMPHETAMINE ASPARTATE\AMPHETAMINE SULFATE\DEXTROAMPHETAMINE SACCHARATE\DEXTROAMPHETAMINE SULFATE
  11. FLONASE [Concomitant]
     Active Substance: FLUTICASONE PROPIONATE
  12. CEPHALEXIN. [Concomitant]
     Active Substance: CEPHALEXIN
  13. KETOCONAZOLE. [Concomitant]
     Active Substance: KETOCONAZOLE
  14. XYREM [Suspect]
     Active Substance: SODIUM OXYBATE
     Dosage: 3.25 G, BID
     Route: 048
     Dates: start: 201603
  15. IBUPROFEN. [Concomitant]
     Active Substance: IBUPROFEN
  16. VISTARIL [Concomitant]
     Active Substance: HYDROXYZINE PAMOATE
  17. CLONAZEPAM. [Concomitant]
     Active Substance: CLONAZEPAM
  18. CETIRIZINE HCL [Concomitant]
     Active Substance: CETIRIZINE HYDROCHLORIDE

REACTIONS (1)
  - Hypersensitivity [Unknown]
